FAERS Safety Report 9281574 (Version 2)
Quarter: 2013Q2

REPORT INFORMATION
  Report Type: Spontaneous
  Country: US (occurrence: US)
  Receive Date: 20130509
  Receipt Date: 20130529
  Transmission Date: 20140414
  Serious: Yes (Hospitalization)
  Sender: FDA-Public Use
  Company Number: US-BAYER-2013-057249

PATIENT
  Age: 84 Year
  Sex: Male
  Weight: 69.9 kg

DRUGS (20)
  1. XARELTO [Suspect]
     Indication: CEREBROVASCULAR ACCIDENT PROPHYLAXIS
     Dosage: 20 MG, QD
     Route: 048
     Dates: start: 20120501, end: 20120614
  2. XARELTO [Suspect]
     Indication: ATRIAL FIBRILLATION
  3. ACETYLSALICYLIC ACID({=100 MG) [Interacting]
     Indication: CORONARY ARTERY DISEASE
     Dosage: 81 MG, QD
     Route: 048
     Dates: start: 20061001, end: 20120614
  4. TRAMADOL [Concomitant]
     Dosage: 100 MG, BID
     Route: 048
  5. TRAMADOL [Concomitant]
     Dosage: 100 MG, BID
     Route: 048
  6. PRAVASTATIN [Concomitant]
     Indication: PRODUCT USED FOR UNKNOWN INDICATION
     Dosage: 20 MG, UNK
     Route: 048
  7. PRAVASTATIN [Concomitant]
     Indication: PRODUCT USED FOR UNKNOWN INDICATION
  8. FISH OIL [Concomitant]
     Dosage: UNK
     Route: 048
  9. FISH OIL [Concomitant]
     Route: 048
  10. FISH OIL [Concomitant]
  11. FISH OIL [Concomitant]
  12. OMEPRAZOLE [Concomitant]
     Dosage: 40 MG, UNK
     Route: 048
  13. PREDNISONE [Concomitant]
     Indication: POLYMYALGIA RHEUMATICA
     Dosage: 3 MG, UNK
     Route: 048
  14. PREDNISONE [Concomitant]
     Indication: POLYMYALGIA RHEUMATICA
  15. PSYLLIUM [Concomitant]
     Dosage: 3.4 G, UNK
     Route: 048
  16. SITAGLIPTIN [Concomitant]
     Dosage: 100 MG, UNK
     Route: 048
  17. AMOXICILLIN [Concomitant]
     Dosage: UNK
     Route: 065
     Dates: start: 20121206
  18. COLECALCIFEROL [Concomitant]
     Dosage: UNK
     Route: 048
  19. LEVOTHYROXINE [Concomitant]
     Dosage: 75 ?G, UNK
     Route: 048
  20. LISINOPRIL [Concomitant]
     Dosage: 20 MG, UNK
     Route: 048

REACTIONS (9)
  - Gastrointestinal haemorrhage [Recovered/Resolved]
  - Occult blood [Recovered/Resolved]
  - Hypotension [Recovered/Resolved]
  - Anaemia [Recovered/Resolved]
  - Platelet count decreased [Recovered/Resolved]
  - Diverticulum intestinal [Unknown]
  - Large intestine polyp [Unknown]
  - Haemorrhoids [Unknown]
  - Gastritis [Unknown]
